FAERS Safety Report 11840387 (Version 1)
Quarter: 2015Q4

REPORT INFORMATION
  Report Type: Spontaneous
  Country: US (occurrence: US)
  Receive Date: 20151216
  Receipt Date: 20151216
  Transmission Date: 20160305
  Serious: No
  Sender: FDA-Public Use
  Company Number: US-GALDERMA-US15006798

PATIENT
  Age: 44 Year
  Sex: Female

DRUGS (12)
  1. MIRVASO [Suspect]
     Active Substance: BRIMONIDINE TARTRATE
     Route: 061
  2. CLINIQUE REDNESS SOLUTIONS MOISTURIZER [Concomitant]
     Route: 061
  3. CLINIQUE SUNBLOCK SPF 40 [Concomitant]
     Route: 061
  4. CERAVE MOISTURIZER [Concomitant]
     Active Substance: OCTINOXATE\TITANIUM DIOXIDE\ZINC OXIDE
     Route: 061
  5. MIRVASO [Suspect]
     Active Substance: BRIMONIDINE TARTRATE
     Route: 061
     Dates: start: 201507
  6. CLINIQUE REDNESS SOLUTIONS CLEANSER [Concomitant]
     Route: 061
  7. IT COSMETICS CC CREAM [Concomitant]
     Route: 061
  8. MIRVASO [Suspect]
     Active Substance: BRIMONIDINE TARTRATE
     Indication: ROSACEA
     Dosage: 0.33%
     Route: 061
     Dates: start: 201505, end: 201507
  9. FISH OIL [Concomitant]
     Active Substance: FISH OIL
  10. CERAVE CLEANSER [Concomitant]
     Route: 061
  11. LEVOTHYROXINE. [Concomitant]
     Active Substance: LEVOTHYROXINE
     Indication: HYPOTHYROIDISM
  12. MULTI VITAMIN [Concomitant]
     Active Substance: VITAMINS

REACTIONS (10)
  - Skin discolouration [Not Recovered/Not Resolved]
  - Emotional distress [Recovered/Resolved]
  - Dry skin [Not Recovered/Not Resolved]
  - Drug effect decreased [Recovered/Resolved]
  - Rash papular [Recovered/Resolved]
  - Rosacea [Recovering/Resolving]
  - Dermatitis [Recovering/Resolving]
  - Dermatitis contact [Recovering/Resolving]
  - Pallor [Recovering/Resolving]
  - Erythema [Recovering/Resolving]
